FAERS Safety Report 5037720-4 (Version None)
Quarter: 2006Q2

REPORT INFORMATION
  Report Type: 
  Country: None (occurrence: None)
  Receive Date: 20060601
  Receipt Date: 20060208
  Transmission Date: 20061013
  Serious: No
  Sender: FDA-Public Use
  Company Number: 2006PV008365

PATIENT
  Age: 56 Year
  Sex: Female
  Weight: 90.7194 kg

DRUGS (6)
  1. BYETTA [Suspect]
     Indication: DIABETES MELLITUS NON-INSULIN-DEPENDENT
     Dosage: SEE IMAGE
     Route: 058
     Dates: start: 20051201, end: 20060130
  2. BYETTA [Suspect]
     Indication: DIABETES MELLITUS NON-INSULIN-DEPENDENT
     Dosage: SEE IMAGE
     Route: 058
     Dates: start: 20060131, end: 20060207
  3. GLUCOPHAGE [Concomitant]
  4. AVANDIA [Concomitant]
  5. RESTORIL [Concomitant]
  6. VISTARIL [Concomitant]

REACTIONS (13)
  - BOWEL SOUNDS ABNORMAL [None]
  - DEPRESSION [None]
  - DIARRHOEA [None]
  - DYSPEPSIA [None]
  - FATIGUE [None]
  - GASTROINTESTINAL HYPERMOTILITY [None]
  - INSOMNIA [None]
  - IRRITABILITY [None]
  - MENTAL IMPAIRMENT [None]
  - NAUSEA [None]
  - POST GASTRIC SURGERY SYNDROME [None]
  - STOMACH DISCOMFORT [None]
  - TENSION [None]
